FAERS Safety Report 10049175 (Version 3)
Quarter: 2017Q1

REPORT INFORMATION
  Report Type: Report from Study
  Country: GR (occurrence: GR)
  Receive Date: 20140401
  Receipt Date: 20170313
  Transmission Date: 20170428
  Serious: No
  Sender: FDA-Public Use
  Company Number: GR-009507513-1403GRC011892

PATIENT
  Age: 56 Year
  Sex: Female

DRUGS (2)
  1. ERTAPENEM SODIUM [Suspect]
     Active Substance: ERTAPENEM SODIUM
     Indication: KLEBSIELLA INFECTION
     Dosage: DOSE 1 GR, 1 HOUR INFUSION EVERY 24 HRS
     Route: 041
  2. MEROPENEM. [Concomitant]
     Active Substance: MEROPENEM
     Indication: KLEBSIELLA INFECTION
     Dosage: 2 GR EVERY 8HRS IN 3HRS OF DURATION INFUSION
     Route: 041

REACTIONS (2)
  - Eosinophilia [Unknown]
  - Treatment failure [Unknown]
